FAERS Safety Report 7341177-8 (Version None)
Quarter: 2011Q1

REPORT INFORMATION
  Report Type: 
  Country: None (occurrence: None)
  Receive Date: 20110309
  Receipt Date: 20110303
  Transmission Date: 20110831
  Serious: Yes (Hospitalization)
  Sender: FDA-Public Use
  Company Number: B0703517A

PATIENT
  Age: 76 Year
  Sex: Male

DRUGS (10)
  1. CLAMOXYL [Suspect]
     Indication: SEPSIS
     Route: 065
     Dates: start: 20101211, end: 20101222
  2. GAVISCON [Concomitant]
     Route: 065
  3. ZOVIRAX [Concomitant]
     Indication: HERPES VIRUS INFECTION
     Route: 042
     Dates: start: 20101206, end: 20101214
  4. TAHOR [Concomitant]
     Route: 065
  5. PROSCAR [Concomitant]
     Route: 065
  6. VASTAREL [Concomitant]
     Route: 065
  7. KARDEGIC [Concomitant]
     Route: 048
  8. LANSOPRAZOLE [Concomitant]
     Route: 065
  9. ROCEPHIN [Suspect]
     Indication: SEPSIS
     Route: 048
     Dates: start: 20101206, end: 20101222
  10. GENTAMICIN [Concomitant]
     Indication: SEPSIS
     Route: 065
     Dates: start: 20101206

REACTIONS (1)
  - HAEMOLYTIC ANAEMIA [None]
